FAERS Safety Report 8179760-2 (Version None)
Quarter: 2012Q1

REPORT INFORMATION
  Report Type: 
  Country: None (occurrence: None)
  Receive Date: 20120302
  Receipt Date: 20120227
  Transmission Date: 20120608
  Serious: Yes (Death, Other)
  Sender: FDA-Public Use
  Company Number: ES-CELGENEUS-144-50794-12012958

PATIENT
  Sex: Male
  Weight: 110 kg

DRUGS (2)
  1. VIDAZA [Suspect]
     Dosage: 600 MILLIGRAM
     Route: 065
     Dates: start: 20101025, end: 20101028
  2. VIDAZA [Suspect]
     Route: 065
     Dates: start: 20100823, end: 20101025

REACTIONS (7)
  - PROCTALGIA [None]
  - ACUTE MYELOID LEUKAEMIA [None]
  - SEPSIS [None]
  - ANAL ULCER [None]
  - BACTERAEMIA [None]
  - RENAL IMPAIRMENT [None]
  - PYREXIA [None]
